FAERS Safety Report 5454306-8 (Version None)
Quarter: 2007Q3

REPORT INFORMATION
  Report Type: 
  Country: None (occurrence: None)
  Receive Date: 20070917
  Receipt Date: 20060726
  Transmission Date: 20080115
  Serious: No
  Sender: FDA-Public Use
  Company Number: US-ASTRAZENECA-2006UW15129

PATIENT
  Sex: Male

DRUGS (3)
  1. SEROQUEL [Suspect]
     Indication: BIPOLAR DISORDER
     Dosage: STARTER PACK
     Route: 048
  2. SEROQUEL [Suspect]
     Indication: ANXIETY DISORDER
     Dosage: STARTER PACK
     Route: 048
  3. SEROQUEL [Suspect]
     Indication: DISSOCIATIVE IDENTITY DISORDER
     Dosage: STARTER PACK
     Route: 048

REACTIONS (2)
  - FATIGUE [None]
  - SOMNOLENCE [None]
